FAERS Safety Report 10096232 (Version 3)
Quarter: 2015Q3

REPORT INFORMATION
  Report Type: Spontaneous
  Country: US (occurrence: US)
  Receive Date: 20140422
  Receipt Date: 20150707
  Transmission Date: 20151125
  Serious: Yes (Hospitalization, Other)
  Sender: FDA-Public Use
  Company Number: US-BAYER-2014-057323

PATIENT
  Age: 45 Year
  Sex: Female
  Weight: 88 kg

DRUGS (5)
  1. OCELLA [Suspect]
     Active Substance: DROSPIRENONE\ETHINYL ESTRADIOL
     Dosage: UNK
     Dates: start: 20130523, end: 20131230
  2. TYLENOL EXTRA STRENGTH [Concomitant]
     Active Substance: ACETAMINOPHEN
     Indication: HEADACHE
  3. IMITREX [Concomitant]
     Active Substance: SUMATRIPTAN\SUMATRIPTAN SUCCINATE
     Dosage: PRN
  4. LANSOPRAZOLE. [Concomitant]
     Active Substance: LANSOPRAZOLE
     Indication: GASTROOESOPHAGEAL REFLUX DISEASE
     Dosage: 15 MG, QD
     Dates: start: 2012
  5. ALLEGRA [Concomitant]
     Active Substance: FEXOFENADINE HYDROCHLORIDE

REACTIONS (13)
  - Injury [None]
  - Cerebrovascular accident [None]
  - Peripheral swelling [None]
  - Pelvic venous thrombosis [None]
  - Pain [None]
  - Palpitations [Recovered/Resolved]
  - Mobility decreased [Recovered/Resolved]
  - Deep vein thrombosis [None]
  - Thrombosis [None]
  - Emotional distress [None]
  - Dyspnoea [Recovered/Resolved]
  - Chest discomfort [Recovered/Resolved]
  - Pulmonary embolism [Recovered/Resolved]

NARRATIVE: CASE EVENT DATE: 20131230
